FAERS Safety Report 25596115 (Version 1)
Quarter: 2025Q3

REPORT INFORMATION
  Report Type: Report from Study
  Country: BR (occurrence: BR)
  Receive Date: 20250723
  Receipt Date: 20250723
  Transmission Date: 20251020
  Serious: Yes (Disabling)
  Sender: TAKEDA
  Company Number: BR-TAKEDA-2021TUS059587

PATIENT
  Age: 51 Year
  Sex: Male
  Weight: 98 kg

DRUGS (6)
  1. ICATIBANT [Suspect]
     Active Substance: ICATIBANT ACETATE
     Indication: Hereditary angioedema
  2. ICATIBANT [Suspect]
     Active Substance: ICATIBANT ACETATE
  3. ICATIBANT [Suspect]
     Active Substance: ICATIBANT ACETATE
  4. OXANDROLONE [Concomitant]
     Active Substance: OXANDROLONE
     Indication: Prophylaxis
     Dosage: 2.5 MILLIGRAM, BID
  5. OXANDROLONE [Concomitant]
     Active Substance: OXANDROLONE
     Dosage: UNK, QD
  6. TRANEXAMIC ACID [Concomitant]
     Active Substance: TRANEXAMIC ACID

REACTIONS (6)
  - Loss of personal independence in daily activities [Unknown]
  - Therapeutic product effect delayed [Unknown]
  - Product dose omission issue [Unknown]
  - Product availability issue [Unknown]
  - Chapped lips [Unknown]
  - Expired product administered [Unknown]

NARRATIVE: CASE EVENT DATE: 20250401
